FAERS Safety Report 8862176 (Version 2)
Quarter: 2012Q4

REPORT INFORMATION
  Report Type: 
  Country: DE (occurrence: DE)
  Receive Date: 20121026
  Receipt Date: 20121219
  Transmission Date: 20130627
  Serious: Yes (Hospitalization)
  Sender: FDA-Public Use
  Company Number: DE-JNJFOC-20121013001

PATIENT
  Age: 88 Year
  Sex: Female
  Weight: 65 kg

DRUGS (16)
  1. XARELTO [Suspect]
     Indication: CEREBROVASCULAR ACCIDENT
     Dosage: film coated tablets
     Route: 048
     Dates: start: 20120924, end: 20120926
  2. XARELTO [Suspect]
     Indication: CEREBROVASCULAR ACCIDENT
     Route: 048
  3. XARELTO [Suspect]
     Indication: ATRIAL FIBRILLATION
     Route: 048
  4. XARELTO [Suspect]
     Indication: ATRIAL FIBRILLATION
     Dosage: film coated tablets
     Route: 048
     Dates: start: 20120924, end: 20120926
  5. XARELTO [Suspect]
     Indication: KNEE ARTHROPLASTY
     Dosage: film coated tablets
     Route: 048
     Dates: start: 20120924, end: 20120926
  6. XARELTO [Suspect]
     Indication: KNEE ARTHROPLASTY
     Route: 048
  7. XARELTO [Suspect]
     Indication: THROMBOSIS PROPHYLAXIS
     Dosage: film coated tablets
     Route: 048
     Dates: start: 20120924, end: 20120926
  8. XARELTO [Suspect]
     Indication: THROMBOSIS PROPHYLAXIS
     Route: 048
  9. PANTOZOL [Concomitant]
  10. BELOC ZOK [Concomitant]
  11. DELIX [Concomitant]
  12. TOREM [Concomitant]
  13. ASS [Concomitant]
  14. SIMVA [Concomitant]
  15. PARACETAMOL [Concomitant]
  16. TARGIN [Concomitant]

REACTIONS (1)
  - Thrombocytopenia [Recovered/Resolved]
